FAERS Safety Report 7009171-4 (Version None)
Quarter: 2010Q3

REPORT INFORMATION
  Report Type: 
  Country: None (occurrence: None)
  Receive Date: 20100923
  Receipt Date: 20100916
  Transmission Date: 20110219
  Serious: Yes (Other)
  Sender: FDA-Public Use
  Company Number: US-JNJFOC-20100901410

PATIENT
  Sex: Male
  Weight: 111.13 kg

DRUGS (2)
  1. LEVAQUIN [Suspect]
     Indication: LOCALISED INFECTION
     Dosage: 1 TABLET
     Route: 048
  2. DOXYCYCLINE [Concomitant]
     Indication: LOCALISED INFECTION
     Dosage: 1 TABLET
     Route: 048

REACTIONS (4)
  - OCULAR HYPERAEMIA [None]
  - PARAESTHESIA [None]
  - SWELLING FACE [None]
  - SWOLLEN TONGUE [None]
